FAERS Safety Report 8794014 (Version 3)
Quarter: 2012Q4

REPORT INFORMATION
  Report Type: 
  Country: US (occurrence: US)
  Receive Date: 20120917
  Receipt Date: 20121128
  Transmission Date: 20130627
  Serious: Yes (Disabling, Other)
  Sender: FDA-Public Use
  Company Number: US-PFIZER INC-2012228039

PATIENT
  Age: 62 Year
  Sex: Male

DRUGS (2)
  1. PRISTIQ [Suspect]
     Dosage: UNK
  2. GEODON [Suspect]
     Dosage: UNK

REACTIONS (4)
  - Parkinson^s disease [Unknown]
  - Carpal tunnel syndrome [Unknown]
  - Loss of consciousness [Unknown]
  - Fall [Unknown]
